FAERS Safety Report 11516246 (Version 2)
Quarter: 2015Q4

REPORT INFORMATION
  Report Type: Not Available
  Country: DE (occurrence: DE)
  Receive Date: 20150917
  Receipt Date: 20151023
  Transmission Date: 20160304
  Serious: Yes (Life-Threatening, Hospitalization)
  Sender: FDA-Public Use
  Company Number: DE-BEH-2015053892

PATIENT
  Age: 73 Year
  Sex: Male

DRUGS (14)
  1. BERIPLEX P/N [Suspect]
     Active Substance: COAGULATION FACTOR IX HUMAN\COAGULATION FACTOR VII HUMAN\COAGULATION FACTOR X HUMAN\PROTEIN C\PROTEIN S HUMAN\PROTHROMBIN
     Indication: HAEMORRHAGIC DIATHESIS
     Route: 042
     Dates: start: 20150829
  2. INSULIN [Concomitant]
     Active Substance: INSULIN NOS
  3. DISOPRIVAN [Concomitant]
     Active Substance: PROPOFOL
  4. SEVOFLURAN [Concomitant]
     Active Substance: SEVOFLURANE
  5. JONOSTERIL [Concomitant]
     Active Substance: CALCIUM ACETATE\MAGNESIUM ACETATE\POTASSIUM ACETATE\SODIUM ACETATE\SODIUM CHLORIDE
  6. BERIPLEX P/N [Suspect]
     Active Substance: COAGULATION FACTOR IX HUMAN\COAGULATION FACTOR VII HUMAN\COAGULATION FACTOR X HUMAN\PROTEIN C\PROTEIN S HUMAN\PROTHROMBIN
     Route: 042
     Dates: start: 20150829
  7. INZOLEN [Concomitant]
     Active Substance: MAGNESIUM ASPARTATE\POTASSIUM ASPARTATE
  8. SUPRARENIN [Concomitant]
     Active Substance: EPINEPHRINE
  9. ADRENALIN [Concomitant]
     Active Substance: EPINEPHRINE
  10. GELAFUNDIN [Concomitant]
     Active Substance: CALCIUM CHLORIDE\GELATIN\SODIUM CHLORIDE
  11. PROTAMIN [Suspect]
     Active Substance: PROTAMINE
     Indication: HAEMORRHAGIC DIATHESIS
     Route: 042
     Dates: start: 20150829
  12. CEFAZOLIN [Concomitant]
     Active Substance: CEFAZOLIN
  13. SUFENTANIL [Concomitant]
     Active Substance: SUFENTANIL
  14. TRANEXAMIC ACID. [Concomitant]
     Active Substance: TRANEXAMIC ACID

REACTIONS (2)
  - Dehydration [Not Recovered/Not Resolved]
  - Pulmonary oedema [Not Recovered/Not Resolved]

NARRATIVE: CASE EVENT DATE: 20150829
